FAERS Safety Report 20585656 (Version 1)
Quarter: 2022Q1

REPORT INFORMATION
  Report Type: Report from Study
  Country: US (occurrence: US)
  Receive Date: 20220312
  Receipt Date: 20220312
  Transmission Date: 20220423
  Serious: Yes (Hospitalization, Other)
  Sender: FDA-Public Use
  Company Number: US-TEVA-2022-US-2015416

PATIENT
  Age: 43 Year
  Sex: Male

DRUGS (1)
  1. COPAXONE [Suspect]
     Active Substance: GLATIRAMER ACETATE
     Route: 065

REACTIONS (5)
  - Injection site infection [Recovering/Resolving]
  - Thrombosis [Recovering/Resolving]
  - Multiple sclerosis [Unknown]
  - Flushing [Unknown]
  - Injection site bruising [Unknown]

NARRATIVE: CASE EVENT DATE: 20121001
